FAERS Safety Report 10252489 (Version 1)
Quarter: 2014Q2

REPORT INFORMATION
  Report Type: Spontaneous
  Country: BR (occurrence: BR)
  Receive Date: 20140623
  Receipt Date: 20140623
  Transmission Date: 20141212
  Serious: Yes (Other)
  Sender: FDA-Public Use
  Company Number: BR-PFIZER INC-2014166955

PATIENT
  Age: 74 Year
  Sex: Female
  Weight: 56 kg

DRUGS (1)
  1. XALATAN [Suspect]
     Dosage: 3 UG, 1 DROP IN EACH EYE, DAILY
     Route: 047
     Dates: start: 2012

REACTIONS (4)
  - Glaucoma [Unknown]
  - Intraocular pressure increased [Unknown]
  - Visual field defect [Unknown]
  - Cataract [Unknown]
